FAERS Safety Report 8874627 (Version 1)
Quarter: 2012Q4

REPORT INFORMATION
  Report Type: 
  Country: US (occurrence: US)
  Receive Date: 20121023
  Receipt Date: 20121023
  Transmission Date: 20130627
  Serious: Yes (Other)
  Sender: FDA-Public Use
  Company Number: US-ROCHE-GNE224400

PATIENT
  Sex: Female

DRUGS (4)
  1. RAPTIVA [Suspect]
     Indication: PSORIASIS
     Route: 065
     Dates: start: 20060412
  2. RAPTIVA [Suspect]
     Dosage: 0.6 ml conditional dose
     Route: 058
  3. SORIATANE [Concomitant]
  4. ZITHROMAX [Concomitant]

REACTIONS (12)
  - Hepatic enzyme increased [Not Recovered/Not Resolved]
  - Lower limb fracture [Unknown]
  - Asthenia [Recovering/Resolving]
  - Chills [Recovering/Resolving]
  - Cough [Recovering/Resolving]
  - Fatigue [Unknown]
  - Pyrexia [Unknown]
  - Platelet count decreased [Unknown]
  - Pain [Unknown]
  - Pruritus [Unknown]
  - Psoriasis [Unknown]
  - Skin lesion [Unknown]
